FAERS Safety Report 6102661-8 (Version None)
Quarter: 2009Q1

REPORT INFORMATION
  Report Type: 
  Country: None (occurrence: None)
  Receive Date: 20090304
  Receipt Date: 20081125
  Transmission Date: 20090719
  Serious: No
  Sender: FDA-Public Use
  Company Number: A0758116A

PATIENT
  Age: 44 Year
  Sex: Female

DRUGS (1)
  1. REQUIP XL [Suspect]
     Indication: RESTLESS LEGS SYNDROME
     Route: 048
     Dates: start: 20081112, end: 20081117

REACTIONS (4)
  - ABDOMINAL PAIN [None]
  - DIARRHOEA [None]
  - DYSARTHRIA [None]
  - NAUSEA [None]
